FAERS Safety Report 16409062 (Version 2)
Quarter: 2019Q2

REPORT INFORMATION
  Report Type: Spontaneous
  Country: US (occurrence: US)
  Receive Date: 20190610
  Receipt Date: 20190622
  Transmission Date: 20190711
  Serious: Yes (Life-Threatening, Hospitalization, Other)
  Sender: FDA-Public Use
  Company Number: US-ACCORD-131642

PATIENT
  Age: 42 Year
  Sex: Female

DRUGS (3)
  1. CAPECITABINE. [Suspect]
     Active Substance: CAPECITABINE
     Indication: NEUROENDOCRINE CARCINOMA METASTATIC
     Dosage: TWICE DAILY, DAYS 1- 14 OF A 28-DAY CYCLE
     Dates: start: 201401, end: 2016
  2. TEMOZOLOMIDE. [Suspect]
     Active Substance: TEMOZOLOMIDE
     Indication: NEUROENDOCRINE CARCINOMA METASTATIC
     Dosage: ONCE DAILY, DAYS 10- 14 OF A 28-DAY CYCLE
     Dates: start: 201401, end: 201603
  3. OCTREOTIDE LAR [Concomitant]
     Active Substance: OCTREOTIDE
     Indication: NEUROENDOCRINE CARCINOMA METASTATIC
     Route: 058

REACTIONS (5)
  - Pancytopenia [Recovered/Resolved]
  - Acute myeloid leukaemia [Recovered/Resolved]
  - Off label use [Unknown]
  - Influenza [Recovering/Resolving]
  - Cytogenetic abnormality [Recovered/Resolved]

NARRATIVE: CASE EVENT DATE: 2016
